FAERS Safety Report 22622336 (Version 1)
Quarter: 2023Q2

REPORT INFORMATION
  Report Type: Report from Study
  Country: US (occurrence: US)
  Receive Date: 20230620
  Receipt Date: 20230620
  Transmission Date: 20230722
  Serious: Yes (Other)
  Sender: FDA-Public Use
  Company Number: US-ABBVIE-5296752

PATIENT
  Age: 65 Year
  Sex: Male

DRUGS (1)
  1. VENCLEXTA [Suspect]
     Active Substance: VENETOCLAX
     Indication: Chronic lymphocytic leukaemia
     Dosage: TIME INTERVAL: 0.33333333 DAYS
     Route: 048
     Dates: start: 20220628

REACTIONS (5)
  - Mantle cell lymphoma [Unknown]
  - Fall [Unknown]
  - Rash [Unknown]
  - Unevaluable event [Unknown]
  - Back disorder [Unknown]

NARRATIVE: CASE EVENT DATE: 20230615
